FAERS Safety Report 5720002-2 (Version None)
Quarter: 2008Q2

REPORT INFORMATION
  Report Type: 
  Country: None (occurrence: None)
  Receive Date: 20080424
  Receipt Date: 20080424
  Transmission Date: 20081010
  Serious: Yes (Hospitalization)
  Sender: FDA-Public Use
  Company Number: None

PATIENT
  Age: 74 Year
  Sex: Male
  Weight: 112.5 kg

DRUGS (1)
  1. WARFARIN SODIUM [Suspect]
     Indication: CEREBROVASCULAR ACCIDENT PROPHYLAXIS
     Dosage: 5 MG OTHER PO
     Route: 048
     Dates: start: 19971010

REACTIONS (6)
  - CONTUSION [None]
  - DIARRHOEA [None]
  - GASTRIC HAEMORRHAGE [None]
  - GASTROINTESTINAL ARTERIOVENOUS MALFORMATION [None]
  - INTERNATIONAL NORMALISED RATIO INCREASED [None]
  - LOWER GASTROINTESTINAL HAEMORRHAGE [None]
